FAERS Safety Report 16955073 (Version 1)
Quarter: 2019Q4

REPORT INFORMATION
  Report Type: Report from Study
  Country: US (occurrence: US)
  Receive Date: 20191024
  Receipt Date: 20191024
  Transmission Date: 20200122
  Serious: No
  Sender: FDA-Public Use
  Company Number: US-ROCHE-2399577

PATIENT
  Age: 50 Year
  Sex: Female

DRUGS (13)
  1. BACLOFEN. [Concomitant]
     Active Substance: BACLOFEN
     Indication: MUSCLE SPASMS
     Dosage: YES
     Route: 048
  2. BIOTIN [Concomitant]
     Active Substance: BIOTIN
     Dosage: YES
     Route: 048
  3. PROVIGIL [Concomitant]
     Active Substance: MODAFINIL
     Dosage: PRN ;ONGOING: YES
     Route: 048
  4. VITAMIN C [Concomitant]
     Active Substance: ASCORBIC ACID
     Dosage: YES
     Route: 048
  5. AMPALAYA PLUS [Concomitant]
     Dosage: YES
     Route: 048
  6. RESTORIL [Concomitant]
     Active Substance: TEMAZEPAM
     Dosage: PRN ;ONGOING: YES
     Route: 048
  7. OCREVUS [Suspect]
     Active Substance: OCRELIZUMAB
     Indication: RELAPSING-REMITTING MULTIPLE SCLEROSIS
     Dosage: YES
     Route: 042
     Dates: start: 20190415
  8. TRILEPTAL [Concomitant]
     Active Substance: OXCARBAZEPINE
     Indication: MUSCULOSKELETAL CHEST PAIN
     Dosage: YES
     Route: 048
  9. NEURONTIN [Concomitant]
     Active Substance: GABAPENTIN
     Indication: NEURALGIA
     Dosage: YES
     Route: 048
  10. VITAMIN B COMPLEX [Concomitant]
     Active Substance: CYANOCOBALAMIN\DEXPANTHENOL\NIACINAMIDE\PYRIDOXINE HYDROCHLORIDE\RIBOFLAVIN 5^-PHOSPHATE SODIUM\THIAMINE HYDROCHLORIDE\VITAMIN B COMPLEX
     Dosage: YES
     Route: 048
  11. DETROL [Concomitant]
     Active Substance: TOLTERODINE TARTRATE
     Dosage: YES
     Route: 048
  12. VALTREX [Concomitant]
     Active Substance: VALACYCLOVIR HYDROCHLORIDE
     Indication: HERPES VIRUS INFECTION
     Dosage: NO
     Route: 048
     Dates: start: 20190417, end: 20190424
  13. VACCINIUM SPP. [Concomitant]
     Dosage: YES
     Route: 048

REACTIONS (2)
  - Herpes virus infection [Recovered/Resolved]
  - Stress [Recovered/Resolved]

NARRATIVE: CASE EVENT DATE: 20190417
